FAERS Safety Report 19210405 (Version 2)
Quarter: 2021Q2

REPORT INFORMATION
  Report Type: Report from Study
  Country: US (occurrence: US)
  Receive Date: 20210504
  Receipt Date: 20210507
  Transmission Date: 20210717
  Serious: Yes (Hospitalization)
  Sender: FDA-Public Use
  Company Number: US-UCBSA-2021018713

PATIENT
  Age: 32 Year
  Sex: Female

DRUGS (3)
  1. LACOSAMIDE. [Suspect]
     Active Substance: LACOSAMIDE
     Indication: SEIZURE
     Dosage: 100MG? 2TABS AM AND 2.5 PM
     Dates: start: 201708
  2. LACOSAMIDE. [Suspect]
     Active Substance: LACOSAMIDE
     Dosage: 100 MG 2 TABLETS IN AM AND 3 AT PM
     Route: 048
  3. KEPPRA [Suspect]
     Active Substance: LEVETIRACETAM
     Indication: PRODUCT USED FOR UNKNOWN INDICATION
     Dosage: STRENGTH 1000 MG

REACTIONS (6)
  - Off label use [Unknown]
  - Product use issue [Unknown]
  - Swelling face [Not Recovered/Not Resolved]
  - Brain operation [Not Recovered/Not Resolved]
  - Overdose [Unknown]
  - Prescribed overdose [Unknown]

NARRATIVE: CASE EVENT DATE: 201708
